FAERS Safety Report 4438119-1 (Version None)
Quarter: 2004Q3

REPORT INFORMATION
  Report Type: 
  Country: None (occurrence: None)
  Receive Date: 20040831
  Receipt Date: 20040525
  Transmission Date: 20050211
  Serious: No
  Sender: FDA-Public Use
  Company Number: US-GLAXOSMITHKLINE-A0512082A

PATIENT
  Age: 48 Year
  Sex: Male

DRUGS (10)
  1. WELLBUTRIN [Suspect]
     Indication: DEPRESSION
     Dosage: 150MG PER DAY
     Route: 048
     Dates: start: 20040519
  2. LANTUS [Concomitant]
  3. HUMALOG [Concomitant]
  4. LANOXIN [Concomitant]
  5. POTASSIUM [Concomitant]
  6. LIPITOR [Concomitant]
  7. BUMEX [Concomitant]
  8. MULTI-VITAMINS [Concomitant]
  9. ASPIRIN [Concomitant]
  10. ZAROXOLYN [Concomitant]

REACTIONS (3)
  - CONSTIPATION [None]
  - HEADACHE [None]
  - NAUSEA [None]
